FAERS Safety Report 5907906-2 (Version None)
Quarter: 2008Q4

REPORT INFORMATION
  Report Type: 
  Country: None (occurrence: None)
  Receive Date: 20081003
  Receipt Date: 20080923
  Transmission Date: 20090506
  Serious: Yes (Other)
  Sender: FDA-Public Use
  Company Number: US-ELI_LILLY_AND_COMPANY-US200809003218

PATIENT
  Sex: Female

DRUGS (3)
  1. CYMBALTA [Suspect]
     Indication: MAJOR DEPRESSION
     Dosage: 60 MG, UNK
     Dates: start: 20080101, end: 20080801
  2. ATIVAN [Concomitant]
     Dosage: 1 MG, EACH EVENING
  3. LUNESTA [Concomitant]
     Dosage: 1 MG, EACH EVENING

REACTIONS (4)
  - DYSPHAGIA [None]
  - GASTROINTESTINAL DISORDER [None]
  - HOSPITALISATION [None]
  - WITHDRAWAL SYNDROME [None]
